FAERS Safety Report 5886209-9 (Version None)
Quarter: 2008Q3

REPORT INFORMATION
  Report Type: 
  Country: None (occurrence: None)
  Receive Date: 20080917
  Receipt Date: 20080905
  Transmission Date: 20090109
  Serious: No
  Sender: FDA-Public Use
  Company Number: FR-ELI_LILLY_AND_COMPANY-FR200808000795

PATIENT
  Age: 61 Year
  Sex: Female
  Weight: 43 kg

DRUGS (6)
  1. FORTEO [Suspect]
     Indication: OSTEOPOROSIS
     Dosage: 20 UG, DAILY (1/D)
     Route: 058
     Dates: start: 20080605
  2. ZOMIG [Concomitant]
     Indication: MIGRAINE
     Dosage: 2.5 UNK, UNK
     Route: 048
  3. LECTIL [Concomitant]
     Indication: VERTIGO
     Dosage: 16 UNK, UNK
     Route: 048
  4. LEVOTHYROX [Concomitant]
     Indication: HYPERTHYROIDISM
     Dosage: 100 UNK, UNKNOWN
     Route: 048
  5. TENORMIN [Concomitant]
     Indication: HYPERTENSION
     Dosage: 100 UNK, UNK
     Route: 048
  6. TAREG [Concomitant]
     Indication: HYPERTENSION
     Dosage: 160 UNK, UNK
     Route: 048

REACTIONS (1)
  - NO ADVERSE EVENT [None]
